FAERS Safety Report 5913947-1 (Version None)
Quarter: 2008Q4

REPORT INFORMATION
  Report Type: 
  Country: None (occurrence: None)
  Receive Date: 20081009
  Receipt Date: 20081003
  Transmission Date: 20090506
  Serious: Yes (Death)
  Sender: FDA-Public Use
  Company Number: US-MERCK-0810USA00449

PATIENT
  Sex: Female

DRUGS (2)
  1. JANUVIA [Suspect]
     Indication: TYPE 2 DIABETES MELLITUS
     Route: 065
  2. [THERAPY UNSPECIFIED] [Suspect]
     Route: 065

REACTIONS (3)
  - OEDEMA PERIPHERAL [None]
  - RENAL FAILURE [None]
  - SWELLING FACE [None]
